FAERS Safety Report 11164625 (Version 2)
Quarter: 2015Q4

REPORT INFORMATION
  Report Type: Spontaneous
  Country: US (occurrence: US)
  Receive Date: 20150604
  Receipt Date: 20151229
  Transmission Date: 20160304
  Serious: No
  Sender: FDA-Public Use
  Company Number: US-PFIZER INC-2015186590

PATIENT
  Sex: Female

DRUGS (2)
  1. ESTRACE VAGINAL [Concomitant]
     Dosage: UNK
  2. DUAVEE [Suspect]
     Active Substance: BAZEDOXIFENE ACETATE\ESTROGENS, CONJUGATED
     Dosage: UNK
     Dates: start: 201505

REACTIONS (2)
  - Drug effect delayed [Unknown]
  - Sensory loss [Unknown]

NARRATIVE: CASE EVENT DATE: 201512
